FAERS Safety Report 8084479-2 (Version None)
Quarter: 2012Q1

REPORT INFORMATION
  Report Type: 
  Country: None (occurrence: None)
  Receive Date: 20120128
  Receipt Date: 20110324
  Transmission Date: 20120608
  Serious: No
  Sender: FDA-Public Use
  Company Number: US-ABBOTT-11P-163-0714079-00

PATIENT
  Age: 36 Year
  Sex: Male

DRUGS (3)
  1. LISINOPRIL [Concomitant]
     Indication: PRODUCT USED FOR UNKNOWN INDICATION
     Dates: start: 20110318
  2. HUMULIN R [Concomitant]
     Indication: PRODUCT USED FOR UNKNOWN INDICATION
     Route: 058
  3. HUMIRA [Suspect]
     Indication: PSORIASIS
     Dates: start: 20090101

REACTIONS (2)
  - ARTHRALGIA [None]
  - PSORIASIS [None]
